FAERS Safety Report 7703098-8 (Version None)
Quarter: 2011Q3

REPORT INFORMATION
  Report Type: 
  Country: None (occurrence: None)
  Receive Date: 20110823
  Receipt Date: 20110812
  Transmission Date: 20111222
  Serious: Yes (Other)
  Sender: FDA-Public Use
  Company Number: US-ASTELLAS-2011US004963

PATIENT
  Age: 20 Year
  Sex: Male

DRUGS (1)
  1. TARCEVA [Suspect]
     Indication: HEPATIC NEOPLASM MALIGNANT
     Dosage: 150 MG, UID/QD
     Route: 048

REACTIONS (4)
  - EOSINOPHILIC OESOPHAGITIS [None]
  - ACNE [None]
  - OESOPHAGEAL ULCER [None]
  - SKIN EXFOLIATION [None]
